FAERS Safety Report 8363534-3 (Version None)
Quarter: 2012Q2

REPORT INFORMATION
  Report Type: 
  Country: None (occurrence: None)
  Receive Date: 20120516
  Receipt Date: 20120508
  Transmission Date: 20120825
  Serious: Yes (Other)
  Sender: FDA-Public Use
  Company Number: PHHY2012JP040973

PATIENT
  Age: 79 Year
  Sex: Male

DRUGS (2)
  1. PROTON PUMP INHIBITORS [Concomitant]
  2. TASIGNA [Suspect]
     Indication: CHRONIC MYELOID LEUKAEMIA
     Dosage: 600 MG, DAILY
     Route: 048
     Dates: start: 20120417

REACTIONS (6)
  - RASH [None]
  - C-REACTIVE PROTEIN INCREASED [None]
  - ATRIAL FIBRILLATION [None]
  - BLOOD PRESSURE DECREASED [None]
  - PYREXIA [None]
  - ERYTHEMA [None]
